FAERS Safety Report 9774244 (Version 1)
Quarter: 2013Q4

REPORT INFORMATION
  Report Type: Report from Study
  Country: CN (occurrence: CN)
  Receive Date: 20131220
  Receipt Date: 20131220
  Transmission Date: 20140711
  Serious: Yes (Other)
  Sender: FDA-Public Use
  Company Number: CN-ROCHE-1317170

PATIENT
  Sex: Female

DRUGS (4)
  1. TRASTUZUMAB [Suspect]
     Indication: HER-2 POSITIVE BREAST CANCER
     Route: 065
  2. GEMCITABINE [Concomitant]
  3. VINORELBINE [Concomitant]
  4. PACLITAXEL [Concomitant]

REACTIONS (5)
  - Granulocytopenia [Unknown]
  - Gastrointestinal disorder [Unknown]
  - Fatigue [Unknown]
  - Hepatic function abnormal [Unknown]
  - Ejection fraction decreased [Unknown]
